FAERS Safety Report 8024649-2 (Version None)
Quarter: 2012Q1

REPORT INFORMATION
  Report Type: 
  Country: None (occurrence: None)
  Receive Date: 20120103
  Receipt Date: 20111220
  Transmission Date: 20120608
  Serious: Yes (Hospitalization)
  Sender: FDA-Public Use
  Company Number: 2011SP059040

PATIENT
  Age: 50 Year
  Sex: Male

DRUGS (2)
  1. REBETOL [Suspect]
     Indication: HEPATIC CIRRHOSIS
     Dosage: 800 MG;QD;PO
     Route: 048
     Dates: start: 20090109
  2. PEG-INTRON [Suspect]
     Indication: HEPATIC CIRRHOSIS
     Dosage: 100 MCG;QW; SC
     Route: 058
     Dates: start: 20090109

REACTIONS (11)
  - DYSSTASIA [None]
  - CONTINUOUS HAEMODIAFILTRATION [None]
  - PYREXIA [None]
  - HEPATIC ENCEPHALOPATHY [None]
  - PLATELET COUNT DECREASED [None]
  - GENERAL PHYSICAL CONDITION ABNORMAL [None]
  - RENAL FAILURE [None]
  - ALTERED STATE OF CONSCIOUSNESS [None]
  - INFLAMMATION [None]
  - INFECTION [None]
  - ACUTE HEPATIC FAILURE [None]
